FAERS Safety Report 8312895-X (Version None)
Quarter: 2012Q2

REPORT INFORMATION
  Report Type: 
  Country: None (occurrence: None)
  Receive Date: 20120424
  Receipt Date: 20120420
  Transmission Date: 20120825
  Serious: Yes (Death)
  Sender: FDA-Public Use
  Company Number: ADR-2010-8324

PATIENT
  Sex: Male

DRUGS (2)
  1. LIORESAL [Suspect]
     Indication: CEREBRAL PALSY
     Dosage: 400 MCG, DAILY, INTRATH
     Route: 037
  2. LIORESAL [Suspect]
     Indication: MUSCLE SPASTICITY
     Dosage: 400 MCG, DAILY, INTRATH
     Route: 037

REACTIONS (2)
  - DEVICE OCCLUSION [None]
  - DEVICE CONNECTION ISSUE [None]
